FAERS Safety Report 19038039 (Version 1)
Quarter: 2021Q1

REPORT INFORMATION
  Report Type: Spontaneous
  Country: US (occurrence: US)
  Receive Date: 20210322
  Receipt Date: 20210322
  Transmission Date: 20210420
  Serious: Yes (Hospitalization, Other)
  Sender: FDA-Public Use
  Company Number: US-ACCORD-219724

PATIENT
  Age: 17 Year
  Sex: Female

DRUGS (14)
  1. CYCLOPHOSPHAMIDE. [Suspect]
     Active Substance: CYCLOPHOSPHAMIDE
     Indication: HODGKIN^S DISEASE
     Dosage: GIVEN AT 75% DOSING
  2. ETOPOSIDE. [Suspect]
     Active Substance: ETOPOSIDE
     Indication: VANISHING BILE DUCT SYNDROME
     Dosage: GIVEN AT 75% DOSING
  3. PREDNISONE. [Suspect]
     Active Substance: PREDNISONE
     Indication: VANISHING BILE DUCT SYNDROME
     Dosage: GIVEN AT 100% DOSING
  4. ETOPOSIDE. [Suspect]
     Active Substance: ETOPOSIDE
     Indication: HODGKIN^S DISEASE
     Dosage: GIVEN AT 75% DOSING
  5. BLEOMYCIN [Suspect]
     Active Substance: BLEOMYCIN SULFATE
     Indication: VANISHING BILE DUCT SYNDROME
     Dosage: GIVEN AT 75% DOSING
  6. DOXORUBICIN [Suspect]
     Active Substance: DOXORUBICIN
     Indication: VANISHING BILE DUCT SYNDROME
     Dosage: GIVEN AT 50% DOSING
  7. CYCLOPHOSPHAMIDE/CYCLOPHOSPHAMIDE MONOHYDRATE [Suspect]
     Active Substance: CYCLOPHOSPHAMIDE
     Indication: VANISHING BILE DUCT SYNDROME
     Dosage: GIVEN AT 75% DOSING
  8. DOXORUBICIN [Suspect]
     Active Substance: DOXORUBICIN
     Indication: VANISHING BILE DUCT SYNDROME
     Dosage: GIVEN AT 75% DOSING
  9. CYCLOPHOSPHAMIDE. [Suspect]
     Active Substance: CYCLOPHOSPHAMIDE
     Indication: VANISHING BILE DUCT SYNDROME
     Dosage: GIVEN AT 50% DOSING
  10. ETOPOSIDE. [Suspect]
     Active Substance: ETOPOSIDE
     Indication: VANISHING BILE DUCT SYNDROME
     Dosage: GIVEN AT 50% DOSING
  11. BLEOMYCIN [Suspect]
     Active Substance: BLEOMYCIN SULFATE
     Indication: HODGKIN^S DISEASE
     Dosage: GIVEN AT 75% DOSING
  12. PREDNISONE. [Suspect]
     Active Substance: PREDNISONE
     Indication: HODGKIN^S DISEASE
     Dosage: GIVEN AT 100% DOSING
  13. BLEOMYCIN [Suspect]
     Active Substance: BLEOMYCIN SULFATE
     Indication: HODGKIN^S DISEASE
     Dosage: GIVEN AT 50% DOSING
  14. DOXORUBICIN [Suspect]
     Active Substance: DOXORUBICIN
     Indication: HODGKIN^S DISEASE
     Dosage: GIVEN AT 75% DOSING

REACTIONS (2)
  - Toxicity to various agents [Unknown]
  - Off label use [Unknown]
